FAERS Safety Report 19062533 (Version 1)
Quarter: 2021Q1

REPORT INFORMATION
  Report Type: Spontaneous
  Country: US (occurrence: US)
  Receive Date: 20210326
  Receipt Date: 20210326
  Transmission Date: 20210420
  Serious: Yes (Hospitalization)
  Sender: FDA-Public Use
  Company Number: None

PATIENT
  Age: 40 Year
  Sex: Female
  Weight: 84.5 kg

DRUGS (1)
  1. ASPIRIN. [Suspect]
     Active Substance: ASPIRIN
     Dates: end: 20210308

REACTIONS (22)
  - Peripheral swelling [None]
  - Neoplasm malignant [None]
  - Malignant mediastinal neoplasm [None]
  - Infusion site haemorrhage [None]
  - Mediastinal mass [None]
  - Metastatic neoplasm [None]
  - Swelling face [None]
  - Swelling [None]
  - Pleural effusion [None]
  - Seroma [None]
  - Pericardial effusion [None]
  - Vena cava thrombosis [None]
  - Discomfort [None]
  - Lung opacity [None]
  - Infection [None]
  - Breast pain [None]
  - Peripheral artery thrombosis [None]
  - Lymphadenopathy [None]
  - Superior vena cava syndrome [None]
  - Dyspnoea [None]
  - Jugular vein thrombosis [None]
  - Deep vein thrombosis [None]

NARRATIVE: CASE EVENT DATE: 20210308
